FAERS Safety Report 10413626 (Version 1)
Quarter: 2014Q2

REPORT INFORMATION
  Report Type: Spontaneous
  Country: US (occurrence: None)
  Receive Date: 20140604
  Receipt Date: 20140604
  Transmission Date: 20141212
  Serious: Yes (Hospitalization)
  Sender: FDA-Public Use
  Company Number: 20120831CINRY3321

PATIENT
  Age: 35 Year
  Sex: Female

DRUGS (7)
  1. CINRYZE (C1 ESTERASE INHIBITOR (HUMAN)) (500 UNIT, INJECTION FOR INFUSION) (C1 ESTERASE INHIBITOR (HUMAN)) [Suspect]
     Indication: HEREDITARY ANGIOEDEMA
     Route: 042
     Dates: start: 201204
  2. CINRYZE (C1 ESTERASE INHIBITOR (HUMAN)) (500 UNIT, INJECTION FOR INFUSION) (C1 ESTERASE INHIBITOR (HUMAN)) [Suspect]
     Indication: PROPHYLAXIS
     Route: 042
     Dates: start: 201204
  3. FIRAZYR (ICATIBANT ACETATE) [Concomitant]
  4. PROPRANOLOL [Concomitant]
  5. BIRTH CONTROL PILLS (PROGESTERONE) [Concomitant]
  6. PRILOSEC (OMEPRAZOLE) [Concomitant]
  7. ^MIGRAINE PILLS^ [Concomitant]

REACTIONS (3)
  - Hereditary angioedema [None]
  - Therapy change [None]
  - Off label use [None]
